FAERS Safety Report 16599112 (Version 2)
Quarter: 2019Q3

REPORT INFORMATION
  Report Type: Report from Study
  Country: JP (occurrence: JP)
  Receive Date: 20190719
  Receipt Date: 20190905
  Transmission Date: 20191004
  Serious: Yes (Hospitalization, Other)
  Sender: FDA-Public Use
  Company Number: GXJP2019JP001379

PATIENT
  Age: 16 Year
  Sex: Female
  Weight: 49.7 kg

DRUGS (43)
  1. ONCOVIN [Suspect]
     Active Substance: VINCRISTINE SULFATE
     Dosage: 2 MG, UNK
     Route: 041
     Dates: start: 20181017, end: 20181017
  2. LEUNASE [Concomitant]
     Active Substance: ASPARAGINASE
     Dosage: 8800 U, UNK
     Route: 041
     Dates: start: 20181018, end: 20181018
  3. LEUNASE [Concomitant]
     Active Substance: ASPARAGINASE
     Dosage: 8900 U, UNK
     Route: 041
     Dates: start: 20190126, end: 20190126
  4. CYLOCIDE [Concomitant]
     Active Substance: CYTARABINE
     Dosage: 100 MG, UNK
     Route: 041
     Dates: start: 20181126, end: 20181201
  5. RED BLOOD CELLS-LEUKOCYTES REDUCED [Concomitant]
     Active Substance: HUMAN RED BLOOD CELL
     Dosage: 2 U, UNK
     Route: 042
     Dates: start: 20181008, end: 20181009
  6. FILGRASTIM BS INJ. SYRINGE [Suspect]
     Active Substance: FILGRASTIM
     Dosage: 150 UG, QD
     Route: 058
     Dates: start: 20190313, end: 20190325
  7. ONCOVIN [Suspect]
     Active Substance: VINCRISTINE SULFATE
     Dosage: 2 MG, UNK
     Route: 041
     Dates: start: 20181010, end: 20181010
  8. PINORUBIN [Concomitant]
     Active Substance: PIRARUBICIN
     Indication: ACUTE LYMPHOCYTIC LEUKAEMIA
     Dosage: 37 MG, UNK
     Route: 041
     Dates: start: 20181003, end: 20181004
  9. DEXART [Concomitant]
     Active Substance: DEXAMETHASONE SODIUM PHOSPHATE
     Indication: ACUTE LYMPHOCYTIC LEUKAEMIA
     Dosage: 14.8 MG, UNK
     Route: 041
     Dates: start: 20181003, end: 20181009
  10. DEXART [Concomitant]
     Active Substance: DEXAMETHASONE SODIUM PHOSPHATE
     Indication: PROPHYLAXIS
     Dosage: 3.3 MG, UNK
     Route: 041
     Dates: start: 20190306, end: 20190308
  11. LEUNASE [Concomitant]
     Active Substance: ASPARAGINASE
     Indication: ACUTE LYMPHOCYTIC LEUKAEMIA
     Dosage: 8800 U, UNK
     Route: 041
     Dates: start: 20181011, end: 20181011
  12. LEUNASE [Concomitant]
     Active Substance: ASPARAGINASE
     Dosage: 8900 U, UNK
     Route: 041
     Dates: start: 20190128, end: 20190128
  13. RED BLOOD CELLS-LEUKOCYTES REDUCED [Concomitant]
     Active Substance: HUMAN RED BLOOD CELL
     Indication: ANAEMIA
     Dosage: 2 U, UNK
     Route: 042
     Dates: start: 20180925, end: 20180926
  14. RED BLOOD CELLS-LEUKOCYTES REDUCED [Concomitant]
     Active Substance: HUMAN RED BLOOD CELL
     Dosage: 2 U, UNK
     Route: 042
     Dates: start: 20190314, end: 20190314
  15. FILGRASTIM BS INJ. SYRINGE [Suspect]
     Active Substance: FILGRASTIM
     Indication: NEUTROPENIA
     Dosage: 150 UG, QD
     Route: 058
     Dates: start: 20181006, end: 20181015
  16. ONCOVIN [Suspect]
     Active Substance: VINCRISTINE SULFATE
     Dosage: 1 MG, UNK
     Route: 041
     Dates: start: 20190130, end: 20190130
  17. PINORUBIN [Concomitant]
     Active Substance: PIRARUBICIN
     Dosage: 37 MG, UNK
     Route: 041
     Dates: start: 20190123, end: 20190123
  18. ENDOXAN [Concomitant]
     Active Substance: CYCLOPHOSPHAMIDE
     Dosage: 1100 MG, UNK
     Route: 041
     Dates: start: 20190306, end: 20190306
  19. LEUNASE [Concomitant]
     Active Substance: ASPARAGINASE
     Dosage: 8800 U, UNK
     Route: 041
     Dates: start: 20181020, end: 20181020
  20. LEUNASE [Concomitant]
     Active Substance: ASPARAGINASE
     Dosage: 8800 U, UNK
     Route: 041
     Dates: start: 20181022, end: 20181022
  21. LEUNASE [Concomitant]
     Active Substance: ASPARAGINASE
     Dosage: 8900 U, UNK
     Route: 041
     Dates: start: 20190204, end: 20190204
  22. CYLOCIDE [Concomitant]
     Active Substance: CYTARABINE
     Dosage: 110 MG, UNK
     Route: 041
     Dates: start: 20190227, end: 20190304
  23. ONCOVIN [Suspect]
     Active Substance: VINCRISTINE SULFATE
     Indication: ACUTE LYMPHOCYTIC LEUKAEMIA
     Dosage: 2 MG, UNK
     Route: 041
     Dates: start: 20181003, end: 20181003
  24. ONCOVIN [Suspect]
     Active Substance: VINCRISTINE SULFATE
     Dosage: 2 MG, UNK
     Route: 041
     Dates: start: 20181024, end: 20181024
  25. LEUNASE [Concomitant]
     Active Substance: ASPARAGINASE
     Dosage: 8800 U, UNK
     Route: 041
     Dates: start: 20181027, end: 20181027
  26. LEUNASE [Concomitant]
     Active Substance: ASPARAGINASE
     Dosage: 8900 U, UNK
     Route: 041
     Dates: start: 20190124, end: 20190124
  27. LEUNASE [Concomitant]
     Active Substance: ASPARAGINASE
     Dosage: 8900 U, UNK
     Route: 041
     Dates: start: 20190202, end: 20190202
  28. FILGRASTIM BS INJ. SYRINGE [Suspect]
     Active Substance: FILGRASTIM
     Dosage: 150 UG, QD
     Route: 058
     Dates: start: 20190201, end: 20190214
  29. ONCOVIN [Suspect]
     Active Substance: VINCRISTINE SULFATE
     Dosage: 1 MG, UNK
     Route: 041
     Dates: start: 20190206, end: 20190206
  30. PINORUBIN [Concomitant]
     Active Substance: PIRARUBICIN
     Dosage: 17 MG, UNK
     Route: 041
     Dates: start: 20181119, end: 20181120
  31. LEUNASE [Concomitant]
     Active Substance: ASPARAGINASE
     Dosage: 8900 U, UNK
     Route: 041
     Dates: start: 20190131, end: 20190131
  32. FILGRASTIM BS INJ. SYRINGE [Suspect]
     Active Substance: FILGRASTIM
     Dosage: 150 UG, QD
     Route: 058
     Dates: start: 20181202, end: 20181210
  33. ENDOXAN [Concomitant]
     Active Substance: CYCLOPHOSPHAMIDE
     Dosage: 740 MG, UNK
     Route: 041
     Dates: start: 20190130, end: 20190130
  34. LEUNASE [Concomitant]
     Active Substance: ASPARAGINASE
     Dosage: 8800 U, UNK
     Route: 041
     Dates: start: 20181013, end: 20181013
  35. LEUNASE [Concomitant]
     Active Substance: ASPARAGINASE
     Dosage: 8800 U, UNK
     Route: 041
     Dates: start: 20181015, end: 20181015
  36. CYLOCIDE [Concomitant]
     Active Substance: CYTARABINE
     Dosage: 110 MG, UNK
     Route: 041
     Dates: start: 20190306, end: 20190311
  37. RED BLOOD CELLS-LEUKOCYTES REDUCED [Concomitant]
     Active Substance: HUMAN RED BLOOD CELL
     Dosage: 2 U, UNK
     Route: 042
     Dates: start: 20181207, end: 20181207
  38. ONCOVIN [Suspect]
     Active Substance: VINCRISTINE SULFATE
     Dosage: 1 MG, UNK
     Route: 041
     Dates: start: 20190123, end: 20190123
  39. PINORUBIN [Concomitant]
     Active Substance: PIRARUBICIN
     Dosage: 36 MG, UNK
     Route: 041
     Dates: start: 20190227, end: 20190228
  40. ENDOXAN [Concomitant]
     Active Substance: CYCLOPHOSPHAMIDE
     Indication: ACUTE LYMPHOCYTIC LEUKAEMIA
     Dosage: 1770 MG, UNK
     Route: 041
     Dates: start: 20181005, end: 20181005
  41. LEUNASE [Concomitant]
     Active Substance: ASPARAGINASE
     Dosage: 8800 U, UNK
     Route: 041
     Dates: start: 20181025, end: 20181025
  42. CYLOCIDE [Concomitant]
     Active Substance: CYTARABINE
     Indication: ACUTE LYMPHOCYTIC LEUKAEMIA
     Dosage: 100 MG, UNK
     Route: 041
     Dates: start: 20181119, end: 20181124
  43. RED BLOOD CELLS-LEUKOCYTES REDUCED [Concomitant]
     Active Substance: HUMAN RED BLOOD CELL
     Dosage: 2 U, UNK
     Route: 042
     Dates: start: 20190326, end: 20190326

REACTIONS (5)
  - Device related infection [Recovering/Resolving]
  - Lymphadenitis [Recovering/Resolving]
  - Haemorrhagic diathesis [Unknown]
  - Intestinal obstruction [Recovering/Resolving]
  - Platelet count decreased [Unknown]

NARRATIVE: CASE EVENT DATE: 20181028
